FAERS Safety Report 7685345-4 (Version None)
Quarter: 2011Q3

REPORT INFORMATION
  Report Type: 
  Country: None (occurrence: None)
  Receive Date: 20110816
  Receipt Date: 20110804
  Transmission Date: 20111222
  Serious: Yes (Other)
  Sender: FDA-Public Use
  Company Number: CA-JNJFOC-20110803865

PATIENT
  Sex: Female
  Weight: 63 kg

DRUGS (4)
  1. MULTIPLE VITAMIN [Concomitant]
  2. REMICADE [Suspect]
     Indication: CROHN'S DISEASE
     Route: 042
     Dates: start: 20110804
  3. FOLIC ACID [Concomitant]
  4. IMURAN [Concomitant]
     Route: 048

REACTIONS (2)
  - RECTAL ABSCESS [None]
  - FISTULA [None]
